FAERS Safety Report 11692133 (Version 1)
Quarter: 2015Q4

REPORT INFORMATION
  Report Type: Spontaneous
  Country: FI (occurrence: FI)
  Receive Date: 20151103
  Receipt Date: 20151103
  Transmission Date: 20160304
  Serious: Yes (Other)
  Sender: FDA-Public Use
  Company Number: FI-ACCORD-034999

PATIENT

DRUGS (1)
  1. CISPLATIN ACCORD [Suspect]
     Active Substance: CISPLATIN
     Indication: PRODUCT USED FOR UNKNOWN INDICATION
     Dosage: PACK SIZE 100 MG: PR02962?PACK SIZE 50 MG: PR00562 AND PR00738

REACTIONS (1)
  - Skin reaction [Unknown]
